FAERS Safety Report 7905649-7 (Version None)
Quarter: 2011Q4

REPORT INFORMATION
  Report Type: 
  Country: None (occurrence: None)
  Receive Date: 20111110
  Receipt Date: 20111103
  Transmission Date: 20120403
  Serious: No
  Sender: FDA-Public Use
  Company Number: US-BIOGENIDEC-2011BI042245

PATIENT
  Sex: Female

DRUGS (1)
  1. TYSABRI [Suspect]
     Indication: MULTIPLE SCLEROSIS
     Route: 042
     Dates: start: 20070316

REACTIONS (8)
  - UPPER EXTREMITY MASS [None]
  - PYREXIA [None]
  - MUSCULOSKELETAL PAIN [None]
  - CYSTITIS [None]
  - INFECTION [None]
  - FATIGUE [None]
  - EYE INFECTION [None]
  - MALAISE [None]
